FAERS Safety Report 7403116-0 (Version None)
Quarter: 2011Q2

REPORT INFORMATION
  Report Type: 
  Country: None (occurrence: None)
  Receive Date: 20110408
  Receipt Date: 20110405
  Transmission Date: 20111010
  Serious: No
  Sender: FDA-Public Use
  Company Number: US-PFIZER INC-2011075467

PATIENT
  Sex: Female
  Weight: 54.422 kg

DRUGS (4)
  1. ACETAMINOPHEN [Concomitant]
     Dosage: UNK
  2. OXYMORPHONE [Concomitant]
     Dosage: UNK, 2X/DAY
  3. TEGRETOL [Concomitant]
     Dosage: UNK
  4. XANAX [Suspect]
     Indication: ANXIETY
     Dosage: UNK, DAILY
     Route: 048
     Dates: start: 20110403

REACTIONS (1)
  - DYSARTHRIA [None]
